FAERS Safety Report 12698711 (Version 8)
Quarter: 2017Q4

REPORT INFORMATION
  Report Type: Spontaneous
  Country: US (occurrence: US)
  Receive Date: 20160830
  Receipt Date: 20171228
  Transmission Date: 20180320
  Serious: Yes (Congenital Anomaly, Other)
  Sender: FDA-Public Use
  Company Number: PHHY2015US127104

PATIENT
  Sex: Female

DRUGS (4)
  1. ZOFRAN [Suspect]
     Active Substance: ONDANSETRON HYDROCHLORIDE
     Indication: FOETAL EXPOSURE DURING PREGNANCY
     Route: 064
  2. ONDANSETRON HYDROCHLORIDE. [Suspect]
     Active Substance: ONDANSETRON HYDROCHLORIDE
     Indication: FOETAL EXPOSURE DURING PREGNANCY
     Dosage: MOTHER DOSE: 04 MG EVERY 12 HOURS (Q12H)
     Route: 064
  3. ONDANSETRON HYDROCHLORIDE. [Suspect]
     Active Substance: ONDANSETRON HYDROCHLORIDE
     Indication: FOETAL EXPOSURE DURING PREGNANCY
     Dosage: MOTHER DOSE: 04 MG, EVERY 12 HOURS (Q12H)
     Route: 064
  4. ZOFRAN [Suspect]
     Active Substance: ONDANSETRON HYDROCHLORIDE
     Indication: FOETAL EXPOSURE DURING PREGNANCY
     Route: 064

REACTIONS (29)
  - Aorta hypoplasia [Unknown]
  - Atrial septal defect [Unknown]
  - Premature baby [Unknown]
  - Lung consolidation [Unknown]
  - Neonatal tachypnoea [Unknown]
  - Cleft palate [Unknown]
  - Left-to-right cardiac shunt [Unknown]
  - Neonatal respiratory distress syndrome [Unknown]
  - Ophthalmia neonatorum [Unknown]
  - Selective eating disorder [Unknown]
  - Vomiting [Unknown]
  - Coarctation of the aorta [Unknown]
  - Left ventricular hypertrophy [Unknown]
  - Deafness [Unknown]
  - Left atrial enlargement [Unknown]
  - Tachycardia [Unknown]
  - Velopharyngeal incompetence [Unknown]
  - Cardiac murmur [Unknown]
  - Ventricular septal defect [Unknown]
  - Congenital anomaly [Unknown]
  - Speech disorder [Unknown]
  - Rash [Unknown]
  - Patent ductus arteriosus [Unknown]
  - Left atrial dilatation [Unknown]
  - Diarrhoea neonatal [Unknown]
  - Foetal exposure during pregnancy [Unknown]
  - Otitis media chronic [Unknown]
  - Polycythaemia neonatorum [Unknown]
  - Tympanic membrane perforation [Unknown]
